FAERS Safety Report 4889907-9 (Version None)
Quarter: 2006Q1

REPORT INFORMATION
  Report Type: 
  Country: None (occurrence: None)
  Receive Date: 20060123
  Receipt Date: 20060123
  Transmission Date: 20060701
  Serious: No
  Sender: FDA-Public Use
  Company Number: None

PATIENT
  Age: 57 Year
  Sex: Female
  Weight: 83.9154 kg

DRUGS (1)
  1. METFORMIN [Suspect]
     Indication: DIABETES MELLITUS NON-INSULIN-DEPENDENT
     Dosage: 500 MG 1 PO BID
     Route: 048
     Dates: start: 20020717, end: 20020828

REACTIONS (3)
  - ACTIVITIES OF DAILY LIVING IMPAIRED [None]
  - DIARRHOEA [None]
  - THERAPEUTIC RESPONSE UNEXPECTED WITH DRUG SUBSTITUTION [None]
